FAERS Safety Report 9063125 (Version 5)
Quarter: 2013Q3

REPORT INFORMATION
  Report Type: Report from Study
  Country: DE (occurrence: DE)
  Receive Date: 20130213
  Receipt Date: 20130830
  Transmission Date: 20140515
  Serious: Yes (Death, Hospitalization)
  Sender: FDA-Public Use
  Company Number: DE-BAYER-2013-016101

PATIENT
  Age: 61 Year
  Sex: Male
  Weight: 72 kg

DRUGS (14)
  1. REGORAFENIB [Suspect]
     Indication: COLORECTAL CANCER METASTATIC
     Dosage: 160 MG, QD
     Route: 048
     Dates: start: 20130109, end: 20130129
  2. MACROGOL [Concomitant]
     Indication: CONSTIPATION
     Dosage: DAILY DOSE 1-2 BAGS
     Route: 048
     Dates: start: 2012
  3. TOREM [Concomitant]
     Indication: OEDEMA
     Dosage: DAILY DOSE 2.5 MG
     Route: 048
     Dates: start: 20130105
  4. LANTUS [Concomitant]
     Indication: DIABETES MELLITUS
     Dosage: DAILY DOSE 6 IU
     Route: 058
     Dates: start: 2002
  5. LIPROLOG [Concomitant]
     Indication: DIABETES MELLITUS
     Dosage: DAILY DOSE 18 IU
     Route: 058
     Dates: start: 2002
  6. NOVALGIN [Concomitant]
     Indication: PAIN
     Dosage: DAILY DOSE 4 G
     Route: 048
     Dates: start: 2012
  7. FENTANYL [Concomitant]
     Indication: PAIN
     Dosage: DAILY DOSE 1800 ?G
     Dates: start: 2012
  8. FENTANYL [Concomitant]
     Indication: PAIN
     Dosage: DAILY DOSE 100 ?G
     Route: 045
     Dates: start: 20130108
  9. FENTANYL [Concomitant]
     Indication: PAIN
     Dosage: DAILY DOSE 100 ?G
     Route: 045
     Dates: start: 20130108
  10. DEXAMETHASON [DEXAMETHASONE] [Concomitant]
     Dosage: DAILY DOSE 4 MG
     Route: 048
     Dates: start: 20121219
  11. RAMIPRIL [RAMIPRIL] [Concomitant]
     Indication: HYPERTENSION
     Dosage: DAILY DOSE 1.25 MG
     Route: 048
     Dates: start: 2002
  12. BETHI SADDONA [Concomitant]
     Indication: STOMATITIS
     Dosage: UNK
     Route: 048
     Dates: start: 20130123
  13. STOMATOLOGICALS, MOUTH PREPARATIONS [Concomitant]
     Indication: STOMATITIS
     Dosage: UNK
     Route: 048
     Dates: start: 20130123
  14. MUTAFLOR [Concomitant]
     Dosage: 1 TABLET
     Route: 048
     Dates: start: 20130123

REACTIONS (2)
  - General physical health deterioration [Fatal]
  - Dehydration [Recovered/Resolved]
